FAERS Safety Report 16149290 (Version 1)
Quarter: 2019Q2

REPORT INFORMATION
  Report Type: Spontaneous
  Country: US (occurrence: US)
  Receive Date: 20190402
  Receipt Date: 20190402
  Transmission Date: 20190711
  Serious: Yes (Other)
  Sender: FDA-Public Use
  Company Number: US-ASTRAZENECA-2019SE47566

PATIENT

DRUGS (7)
  1. NAPROSYN [Concomitant]
     Active Substance: NAPROXEN
  2. AMOXICILLIN. [Concomitant]
     Active Substance: AMOXICILLIN
  3. CODEINE [Concomitant]
     Active Substance: CODEINE
  4. CRESTOR [Suspect]
     Active Substance: ROSUVASTATIN CALCIUM
     Route: 048
  5. NIASPAN [Concomitant]
     Active Substance: NIACIN
  6. DITROPAN [Concomitant]
     Active Substance: OXYBUTYNIN CHLORIDE
  7. PREGABALIN. [Concomitant]
     Active Substance: PREGABALIN

REACTIONS (6)
  - Anaphylactic reaction [Unknown]
  - Rash [Unknown]
  - Urticaria [Unknown]
  - Polymyalgia rheumatica [Unknown]
  - Pain [Unknown]
  - Drug ineffective [Unknown]
